FAERS Safety Report 19443596 (Version 3)
Quarter: 2021Q3

REPORT INFORMATION
  Report Type: Report from Study
  Country: DE (occurrence: DE)
  Receive Date: 20210621
  Receipt Date: 20210729
  Transmission Date: 20211014
  Serious: Yes (Hospitalization, Other)
  Sender: FDA-Public Use
  Company Number: DE-BRISTOL-MYERS SQUIBB COMPANY-BMS-2021-057736

PATIENT
  Age: 74 Year
  Sex: Male
  Weight: 53 kg

DRUGS (15)
  1. CABOZANTINIB S?MALATE [Suspect]
     Active Substance: CABOZANTINIB S-MALATE
     Dosage: 40 MG, DAILY
     Route: 048
     Dates: start: 20191127, end: 20200511
  2. LERCANIDIPINE [Concomitant]
     Active Substance: LERCANIDIPINE
     Indication: HYPERTENSION
     Dosage: 10 MG, BID
     Route: 065
     Dates: start: 201911
  3. TRAMADOL STADA [Concomitant]
     Indication: PAIN PROPHYLAXIS
     Dosage: 50 MILLIGRAM, BID
     Route: 065
  4. AMLODIPIN 1 A PHARMA [Concomitant]
     Active Substance: AMLODIPINE BESYLATE
     Indication: HYPERTENSION
     Dosage: 5 MILLIGRAM, BID
     Route: 065
  5. CABOZANTINIB S?MALATE [Suspect]
     Active Substance: CABOZANTINIB S-MALATE
     Dosage: 20 MG, DAILY
     Route: 048
     Dates: start: 20200512, end: 20201023
  6. L?THYROX [Concomitant]
     Active Substance: LEVOTHYROXINE SODIUM
     Indication: THYROID FUNCTION TEST ABNORMAL
     Dosage: 25 MILLIGRAM, QD
     Route: 048
  7. OMEPRAZOL 1 A PHARMA [Concomitant]
     Active Substance: OMEPRAZOLE
     Indication: GASTROOESOPHAGEAL REFLUX PROPHYLAXIS
     Dosage: 20 MILLIGRAM, PRN
     Route: 065
  8. MCP [Concomitant]
     Active Substance: METOCLOPRAMIDE HYDROCHLORIDE
     Indication: PROPHYLAXIS
     Dosage: 10 MILLIGRAM, PRN
     Route: 048
     Dates: start: 20191105
  9. CABOZANTINIB S?MALATE [Suspect]
     Active Substance: CABOZANTINIB S-MALATE
     Indication: RENAL CELL CARCINOMA
     Dosage: 60 MG, DAILY
     Route: 048
     Dates: start: 20190918, end: 20191126
  10. ATORVASTATIN [Concomitant]
     Active Substance: ATORVASTATIN
     Indication: HYPERLIPIDAEMIA
     Dosage: 10 MILLIGRAM, QD
     Route: 065
  11. NIVOLUMAB [Suspect]
     Active Substance: NIVOLUMAB
     Indication: RENAL CELL CARCINOMA
     Dosage: UNK
     Route: 065
  12. RAMILICH [Concomitant]
     Active Substance: RAMIPRIL
     Indication: HYPERTENSION
     Dosage: 10 MILLIGRAM, QD
     Route: 065
  13. ASS 1 A PHARMA [Concomitant]
     Active Substance: ASPIRIN
     Indication: CARDIOVASCULAR EVENT PROPHYLAXIS
     Dosage: 100 MILLIGRAM, QD
     Route: 065
  14. ASS 1 A PHARMA [Concomitant]
     Active Substance: ASPIRIN
     Indication: CEREBROVASCULAR ACCIDENT PROPHYLAXIS
  15. NEPRESOL [DIHYDRALAZINE MESILATE] [Concomitant]
     Indication: HYPERTENSION
     Dosage: 1649 MILLIGRAM, TID
     Route: 065

REACTIONS (4)
  - Sciatica [Recovered/Resolved]
  - Bacillus infection [Recovered/Resolved]
  - Diarrhoea [Recovered/Resolved]
  - Arthralgia [Recovered/Resolved with Sequelae]

NARRATIVE: CASE EVENT DATE: 202004
